FAERS Safety Report 10800395 (Version 1)
Quarter: 2015Q1

REPORT INFORMATION
  Report Type: Spontaneous
  Country: US (occurrence: US)
  Receive Date: 20150216
  Receipt Date: 20150216
  Transmission Date: 20150721
  Serious: No
  Sender: FDA-Public Use
  Company Number: US-ALLERGAN-1412271US

PATIENT
  Age: 87 Year
  Sex: Female

DRUGS (1)
  1. RESTASIS [Suspect]
     Active Substance: CYCLOSPORINE
     Indication: BLEPHARITIS
     Dosage: 2 GTT, UNK
     Route: 047
     Dates: start: 201405, end: 20140531

REACTIONS (4)
  - Ocular discomfort [Not Recovered/Not Resolved]
  - Multiple use of single-use product [Unknown]
  - Eye irritation [Recovered/Resolved]
  - Off label use [Unknown]
